FAERS Safety Report 13664886 (Version 1)
Quarter: 2017Q2

REPORT INFORMATION
  Report Type: Spontaneous
  Country: US (occurrence: US)
  Receive Date: 20170619
  Receipt Date: 20170619
  Transmission Date: 20170830
  Serious: Yes (Hospitalization)
  Sender: FDA-Public Use
  Company Number: None

PATIENT
  Age: 74 Year
  Sex: Male
  Weight: 93 kg

DRUGS (1)
  1. PAZOPANIB (GW786034) [Suspect]
     Active Substance: PAZOPANIB
     Dates: end: 20170611

REACTIONS (5)
  - Back pain [None]
  - Constipation [None]
  - Metastatic neoplasm [None]
  - Urinary incontinence [None]
  - Asthenia [None]

NARRATIVE: CASE EVENT DATE: 20170612
